FAERS Safety Report 24946887 (Version 4)
Quarter: 2025Q1

REPORT INFORMATION
  Report Type: Report from Study
  Country: DE (occurrence: DE)
  Receive Date: 20250210
  Receipt Date: 20250224
  Transmission Date: 20250409
  Serious: Yes (Hospitalization, Other)
  Sender: ROCHE
  Company Number: DE-ROCHE-10000199777

PATIENT
  Age: 46 Year
  Sex: Male

DRUGS (3)
  1. OCREVUS [Suspect]
     Active Substance: OCRELIZUMAB
     Indication: Relapsing-remitting multiple sclerosis
     Dosage: SUBSEQUENT DOSE 600 MG IN 203 DAYS?LAST DOSE: 25/APR/2024?600 MG 1 IN 196 DAYS
     Route: 042
     Dates: start: 20230323
  2. TIZANIDINE [Concomitant]
     Active Substance: TIZANIDINE
     Dosage: (1-1-1)
  3. DALFAMPRIDINE [Concomitant]
     Active Substance: DALFAMPRIDINE

REACTIONS (34)
  - COVID-19 [Not Recovered/Not Resolved]
  - Suicidal ideation [Not Recovered/Not Resolved]
  - Asthenia [Not Recovered/Not Resolved]
  - Gait disturbance [Not Recovered/Not Resolved]
  - Off label use [Unknown]
  - Myalgia [Recovering/Resolving]
  - Muscle tightness [Recovering/Resolving]
  - Electric shock sensation [Not Recovered/Not Resolved]
  - Musculoskeletal pain [Not Recovered/Not Resolved]
  - Dysstasia [Not Recovered/Not Resolved]
  - Sciatica [Not Recovered/Not Resolved]
  - Arthralgia [Recovered/Resolved]
  - Erectile dysfunction [Not Recovered/Not Resolved]
  - Dry mouth [Not Recovered/Not Resolved]
  - Insomnia [Recovered/Resolved]
  - Fine motor skill dysfunction [Recovering/Resolving]
  - Paraesthesia [Not Recovered/Not Resolved]
  - Blood pressure increased [Recovered/Resolved]
  - Heart rate increased [Recovered/Resolved]
  - Abdominal pain [Recovered/Resolved]
  - Emotional distress [Not Recovered/Not Resolved]
  - Hypokinesia [Recovering/Resolving]
  - Depression [Not Recovered/Not Resolved]
  - Hypertension [Recovering/Resolving]
  - Nightmare [Recovered/Resolved]
  - Night sweats [Recovered/Resolved]
  - Acne [Recovered/Resolved]
  - Myalgia [Unknown]
  - Dyspnoea [Not Recovered/Not Resolved]
  - Peroneal nerve palsy [Recovering/Resolving]
  - Drug ineffective [Unknown]
  - Fall [Unknown]
  - Blood glucose increased [Recovered/Resolved]
  - Tremor [Recovering/Resolving]

NARRATIVE: CASE EVENT DATE: 20230323
